FAERS Safety Report 7483135-9 (Version None)
Quarter: 2011Q2

REPORT INFORMATION
  Report Type: 
  Country: None (occurrence: None)
  Receive Date: 20110516
  Receipt Date: 20110509
  Transmission Date: 20111010
  Serious: Yes (Hospitalization)
  Sender: FDA-Public Use
  Company Number: JP-MERCK-1104USA03901

PATIENT
  Age: 80 Year
  Sex: Female

DRUGS (6)
  1. JANUVIA [Suspect]
     Indication: DIABETES MELLITUS
     Route: 048
     Dates: start: 20110323, end: 20110411
  2. TIZANIDINE HYDROCHLORIDE [Concomitant]
     Route: 048
  3. CALFINA [Concomitant]
     Indication: OSTEOPOROSIS
     Dosage: THE DIVIDED DOSE FREQUENCY IS UNCERTAIN
     Route: 048
  4. CRESTOR [Concomitant]
     Indication: HYPERLIPIDAEMIA
     Route: 048
  5. FOSAMAX [Concomitant]
     Indication: OSTEOPOROSIS
     Route: 048
  6. PRODONER [Concomitant]
     Route: 048

REACTIONS (2)
  - CHOLELITHIASIS [None]
  - LIVER DISORDER [None]
